FAERS Safety Report 19157348 (Version 1)
Quarter: 2021Q2

REPORT INFORMATION
  Report Type: Spontaneous
  Country: NL (occurrence: NL)
  Receive Date: 20210420
  Receipt Date: 20210420
  Transmission Date: 20210717
  Serious: Yes (Hospitalization)
  Sender: FDA-Public Use
  Company Number: NVSC2021NL080200

PATIENT
  Sex: Male
  Weight: 110 kg

DRUGS (3)
  1. ADALIMUMAB [Concomitant]
     Active Substance: ADALIMUMAB
     Indication: PRODUCT USED FOR UNKNOWN INDICATION
     Dosage: 40 MG
     Route: 065
  2. PREDNISONE. [Suspect]
     Active Substance: PREDNISONE
     Indication: COLITIS ULCERATIVE
     Dosage: 1 DF, QD (1X PER DAG 1 STUK, BEHALVE BIJ HET AFBOUWEN NAAR 5MG/0MG)
     Route: 065
     Dates: start: 202011
  3. MONTELUKAST [Concomitant]
     Active Substance: MONTELUKAST SODIUM
     Indication: PRODUCT USED FOR UNKNOWN INDICATION
     Dosage: 10 MG
     Route: 065

REACTIONS (10)
  - Bone pain [Recovered/Resolved]
  - Myalgia [Recovered/Resolved]
  - Arthralgia [Recovered/Resolved]
  - Diarrhoea [Recovered/Resolved]
  - Vomiting [Recovered/Resolved]
  - Affect lability [Recovered/Resolved]
  - Nausea [Recovered/Resolved]
  - Hormone level abnormal [Recovered/Resolved]
  - Libido disorder [Recovered/Resolved]
  - Acne [Recovered/Resolved]
